FAERS Safety Report 9783938 (Version 2)
Quarter: 2014Q1

REPORT INFORMATION
  Report Type: Spontaneous
  Country: JP (occurrence: JP)
  Receive Date: 20131226
  Receipt Date: 20140123
  Transmission Date: 20141002
  Serious: Yes (Other)
  Sender: FDA-Public Use
  Company Number: PHHY2013JP150255

PATIENT
  Age: 77 Year
  Sex: Female

DRUGS (5)
  1. MEMANTINE HYDROCHLORIDE [Suspect]
     Indication: DEMENTIA ALZHEIMER^S TYPE
     Dosage: 5 MG, UNK
  2. DONEPEZIL [Suspect]
     Indication: DEMENTIA ALZHEIMER^S TYPE
     Dosage: 3 MG, UNK
     Route: 048
  3. DONEPEZIL [Suspect]
     Dosage: 5 MG, UNK
     Route: 048
  4. DONEPEZIL [Suspect]
     Dosage: 10 MG, UNK
     Route: 048
  5. DONEPEZIL [Suspect]
     Dosage: 5 MG, UNK
     Route: 048

REACTIONS (2)
  - Electrocardiogram PR prolongation [Recovering/Resolving]
  - Bradycardia [Recovering/Resolving]
